FAERS Safety Report 4695421-6 (Version None)
Quarter: 2005Q2

REPORT INFORMATION
  Report Type: 
  Country: None (occurrence: None)
  Receive Date: 20050620
  Receipt Date: 20050620
  Transmission Date: 20051028
  Serious: No
  Sender: FDA-Public Use
  Company Number: None

PATIENT
  Sex: Male
  Weight: 101.6057 kg

DRUGS (1)
  1. MESTINON [Suspect]
     Indication: MYASTHENIA GRAVIS
     Dosage: 180 MG   BID    ORAL
     Route: 048
     Dates: start: 20050420, end: 20050617

REACTIONS (1)
  - PHARMACEUTICAL PRODUCT COMPLAINT [None]
